FAERS Safety Report 4672492-4 (Version None)
Quarter: 2005Q2

REPORT INFORMATION
  Report Type: 
  Country: None (occurrence: None)
  Receive Date: 20050524
  Receipt Date: 20050517
  Transmission Date: 20051028
  Serious: Yes (Hospitalization)
  Sender: FDA-Public Use
  Company Number: 200511644FR

PATIENT
  Age: 86 Year
  Sex: Female
  Weight: 55 kg

DRUGS (5)
  1. FLAGYL [Suspect]
     Indication: DIVERTICULUM INTESTINAL
     Route: 048
  2. FLAGYL [Suspect]
     Indication: SIGMOIDITIS
     Route: 048
  3. DEROXAT [Suspect]
     Route: 048
  4. PREVISCAN [Concomitant]
     Route: 048
  5. OFLOCET [Concomitant]
     Route: 048
     Dates: start: 20050120, end: 20050318

REACTIONS (1)
  - HEPATITIS CHOLESTATIC [None]
